FAERS Safety Report 9725349 (Version 1)
Quarter: 2013Q4

REPORT INFORMATION
  Report Type: Spontaneous
  Country: US (occurrence: None)
  Receive Date: 20131129
  Receipt Date: 20131129
  Transmission Date: 20140711
  Serious: Yes (Other)
  Sender: FDA-Public Use
  Company Number: 2013-US-003580

PATIENT
  Age: 57 Year
  Sex: Male

DRUGS (1)
  1. XYREM (SODIUM OXYBATE) ORAL SOLLUTION, 500MG/ML [Suspect]
     Indication: INSOMNIA
     Route: 048
     Dates: start: 200911

REACTIONS (5)
  - Feeling of despair [None]
  - Nasal congestion [None]
  - Vomiting [None]
  - Quality of life decreased [None]
  - Vomiting [None]
